FAERS Safety Report 6231516-3 (Version None)
Quarter: 2009Q2

REPORT INFORMATION
  Report Type: 
  Country: None (occurrence: None)
  Receive Date: 20090612
  Receipt Date: 20090612
  Transmission Date: 20091009
  Serious: No
  Sender: FDA-Public Use
  Company Number: None

PATIENT
  Age: 49 Year
  Sex: Female
  Weight: 56.246 kg

DRUGS (1)
  1. FACTIVE [Suspect]
     Indication: UPPER RESPIRATORY TRACT INFECTION
     Dosage: 1 PILL DAILY PO
     Route: 048
     Dates: start: 20090528, end: 20090601

REACTIONS (6)
  - DIARRHOEA [None]
  - DIZZINESS [None]
  - HEADACHE [None]
  - PAIN [None]
  - PARAESTHESIA [None]
  - PHOTOPHOBIA [None]
